FAERS Safety Report 17700360 (Version 3)
Quarter: 2020Q2

REPORT INFORMATION
  Report Type: Spontaneous
  Country: US (occurrence: US)
  Receive Date: 20200423
  Receipt Date: 20200616
  Transmission Date: 20200714
  Serious: No
  Sender: FDA-Public Use
  Company Number: US-ASTRAZENECA-2020SE53389

PATIENT
  Age: 24936 Day
  Sex: Female
  Weight: 77.6 kg

DRUGS (2)
  1. BYETTA [Suspect]
     Active Substance: EXENATIDE
     Indication: DIABETES MELLITUS
     Dosage: 250 MCG/2.4 ML, 2 SHOTS A DAY USING THE 2.4 ML PEN- TWO TIMES A DAY
     Route: 058
     Dates: start: 202001
  2. BYETTA [Suspect]
     Active Substance: EXENATIDE
     Indication: DIABETES MELLITUS
     Dosage: 10 UG
     Route: 058
     Dates: start: 20200116

REACTIONS (2)
  - Injection site haemorrhage [Unknown]
  - Device delivery system issue [Recovered/Resolved]

NARRATIVE: CASE EVENT DATE: 20200415
